FAERS Safety Report 17478440 (Version 1)
Quarter: 2020Q1

REPORT INFORMATION
  Report Type: Report from Study
  Country: GB (occurrence: GB)
  Receive Date: 20200228
  Receipt Date: 20200228
  Transmission Date: 20200409
  Serious: Yes (Other)
  Sender: FDA-Public Use
  Company Number: GB-JNJFOC-20191111993

PATIENT
  Age: 53 Year
  Sex: Female

DRUGS (5)
  1. STELARA [Suspect]
     Active Substance: USTEKINUMAB
     Indication: CROHN^S DISEASE
     Route: 058
     Dates: start: 20190708
  2. DEXTROPROPOXYPHENE/ PARACETAMOL [Concomitant]
     Active Substance: ACETAMINOPHEN\PROPOXYPHENE
     Indication: PRODUCT USED FOR UNKNOWN INDICATION
  3. STELARA [Suspect]
     Active Substance: USTEKINUMAB
     Route: 058
     Dates: start: 2019
  4. STELARA [Suspect]
     Active Substance: USTEKINUMAB
     Route: 058
     Dates: start: 2019
  5. VITAMIN C [Concomitant]
     Active Substance: ASCORBIC ACID
     Indication: PRODUCT USED FOR UNKNOWN INDICATION

REACTIONS (5)
  - Product use issue [Unknown]
  - Crohn^s disease [Unknown]
  - Product dose omission [Unknown]
  - Skin infection [Unknown]
  - Off label use [Unknown]

NARRATIVE: CASE EVENT DATE: 2019
